FAERS Safety Report 19094132 (Version 1)
Quarter: 2021Q2

REPORT INFORMATION
  Report Type: Spontaneous
  Country: US (occurrence: US)
  Receive Date: 20210405
  Receipt Date: 20210405
  Transmission Date: 20210717
  Serious: Yes (Hospitalization)
  Sender: FDA-Public Use
  Company Number: US-ABBVIE-21K-163-3838616-00

PATIENT
  Sex: Female
  Weight: 79.45 kg

DRUGS (5)
  1. HUMIRA [Suspect]
     Active Substance: ADALIMUMAB
     Indication: CROHN^S DISEASE
     Route: 058
     Dates: start: 2016
  2. TASOL [Concomitant]
     Indication: PRODUCT USED FOR UNKNOWN INDICATION
  3. COVID?19 VACCINE NOS. [Concomitant]
     Active Substance: COVID-19 VACCINE NOS
     Indication: COVID-19 IMMUNISATION
     Dosage: PFIZER
     Dates: start: 20210315, end: 20210315
  4. BUPRENORPHINE. [Concomitant]
     Active Substance: BUPRENORPHINE
     Indication: PRODUCT USED FOR UNKNOWN INDICATION
  5. WELLBUTRIN [Concomitant]
     Active Substance: BUPROPION HYDROCHLORIDE
     Indication: PRODUCT USED FOR UNKNOWN INDICATION

REACTIONS (13)
  - Arthralgia [Unknown]
  - Panic attack [Unknown]
  - Osteoarthritis [Not Recovered/Not Resolved]
  - Intestinal stenosis [Unknown]
  - Bone loss [Unknown]
  - Ankylosing spondylitis [Not Recovered/Not Resolved]
  - Gastrointestinal pain [Unknown]
  - Perforation [Unknown]
  - Osteopenia [Unknown]
  - Fatigue [Unknown]
  - Fistula [Unknown]
  - Fibromyalgia [Not Recovered/Not Resolved]
  - Anaemia [Unknown]

NARRATIVE: CASE EVENT DATE: 2017
